FAERS Safety Report 18297502 (Version 2)
Quarter: 2020Q3

REPORT INFORMATION
  Report Type: Spontaneous
  Country: JP (occurrence: JP)
  Receive Date: 20200922
  Receipt Date: 20200929
  Transmission Date: 20201103
  Serious: Yes (Other)
  Sender: FDA-Public Use
  Company Number: JP-JNJFOC-20200928846

PATIENT
  Age: 8 Decade
  Sex: Female

DRUGS (4)
  1. TREMFYA [Suspect]
     Active Substance: GUSELKUMAB
  2. TREMFYA [Suspect]
     Active Substance: GUSELKUMAB
     Indication: PALMOPLANTAR PUSTULOSIS
     Dosage: EVERY 4 OR 8 WEEKS
     Route: 058
     Dates: start: 20190425
  3. TREMFYA [Suspect]
     Active Substance: GUSELKUMAB
     Route: 058
  4. BIOTIN [Concomitant]
     Active Substance: BIOTIN
     Indication: PALMOPLANTAR PUSTULOSIS
     Route: 065

REACTIONS (1)
  - Pneumonia bacterial [Recovered/Resolved]

NARRATIVE: CASE EVENT DATE: 20190725
